FAERS Safety Report 24805541 (Version 2)
Quarter: 2025Q1

REPORT INFORMATION
  Report Type: Spontaneous
  Country: CA (occurrence: CA)
  Receive Date: 20250103
  Receipt Date: 20250130
  Transmission Date: 20250409
  Serious: Yes (Other)
  Sender: JOHNSON AND JOHNSON
  Company Number: CA-JNJFOC-20241282633

PATIENT
  Age: 73 Year
  Sex: Female

DRUGS (1)
  1. INVOKANA [Suspect]
     Active Substance: CANAGLIFLOZIN
     Indication: Glucose tolerance impaired
     Route: 048

REACTIONS (4)
  - Renal impairment [Recovering/Resolving]
  - Antinuclear antibody positive [Recovering/Resolving]
  - Vasculitis [Recovering/Resolving]
  - Off label use [Unknown]
